FAERS Safety Report 7145276-5 (Version None)
Quarter: 2010Q4

REPORT INFORMATION
  Report Type: 
  Country: None (occurrence: None)
  Receive Date: 20101123
  Receipt Date: 20101110
  Transmission Date: 20110411
  Serious: Yes (Hospitalization)
  Sender: FDA-Public Use
  Company Number: 2010SP049614

PATIENT
  Age: 12 Year
  Sex: Female

DRUGS (1)
  1. AERIUS (DESLORATADINE /01398501/) [Suspect]
     Indication: SOLAR URTICARIA
     Dosage: PO
     Route: 048
     Dates: start: 20100525

REACTIONS (2)
  - CYTOLYTIC HEPATITIS [None]
  - HEPATITIS CHOLESTATIC [None]
